FAERS Safety Report 4953325-5 (Version None)
Quarter: 2006Q1

REPORT INFORMATION
  Report Type: 
  Country: None (occurrence: None)
  Receive Date: 20060127
  Receipt Date: 20051115
  Transmission Date: 20060701
  Serious: Yes (Hospitalization)
  Sender: FDA-Public Use
  Company Number: 2005-US-01091

PATIENT
  Age: 38 Year
  Sex: Female

DRUGS (1)
  1. CLOZAPINE [Suspect]
     Indication: SCHIZOAFFECTIVE DISORDER
     Dosage: 350 MG, ORAL
     Route: 048
     Dates: start: 20050201

REACTIONS (1)
  - PSYCHOTIC DISORDER [None]
